FAERS Safety Report 9774196 (Version 2)
Quarter: 2013Q4

REPORT INFORMATION
  Report Type: Spontaneous
  Country: GB (occurrence: GB)
  Receive Date: 20131220
  Receipt Date: 20131220
  Transmission Date: 20140711
  Serious: Yes (Other)
  Sender: FDA-Public Use
  Company Number: GB-GALDERMA-GB13003580

PATIENT
  Sex: Male

DRUGS (2)
  1. PLIAGLIS [Suspect]
     Indication: HYPERHIDROSIS
     Dosage: LIDOCAINE 7%/ TETRACAINE 7%
     Route: 061
  2. PLIAGLIS [Suspect]
     Indication: ANAESTHETIC PREMEDICATION

REACTIONS (2)
  - Erythema [Recovered/Resolved]
  - Skin oedema [Recovered/Resolved]
